FAERS Safety Report 8239818-6 (Version None)
Quarter: 2012Q1

REPORT INFORMATION
  Report Type: 
  Country: None (occurrence: None)
  Receive Date: 20120328
  Receipt Date: 20120322
  Transmission Date: 20120608
  Serious: Yes (Hospitalization, Other)
  Sender: FDA-Public Use
  Company Number: PL-ASTELLAS-2012EU002258

PATIENT
  Sex: Female

DRUGS (2)
  1. VESICARE [Suspect]
     Dosage: UNK
     Route: 048
     Dates: start: 20101101
  2. VESICARE [Suspect]
     Indication: HYPERTONIC BLADDER
     Dosage: UNK
     Route: 048
     Dates: start: 20100601, end: 20100801

REACTIONS (7)
  - ANXIETY [None]
  - VISUAL IMPAIRMENT [None]
  - BLOOD POTASSIUM DECREASED [None]
  - CIRCULATORY COLLAPSE [None]
  - DEAFNESS [None]
  - URINARY RETENTION [None]
  - MYDRIASIS [None]
